FAERS Safety Report 15307431 (Version 2)
Quarter: 2018Q4

REPORT INFORMATION
  Report Type: Spontaneous
  Country: SK (occurrence: SK)
  Receive Date: 20180822
  Receipt Date: 20181130
  Transmission Date: 20190204
  Serious: Yes (Other)
  Sender: FDA-Public Use
  Company Number: PHHY2018SK075724

PATIENT
  Age: 71 Year
  Sex: Female

DRUGS (3)
  1. BISOPROLOL [Suspect]
     Active Substance: BISOPROLOL
     Indication: PULMONARY ARTERIAL HYPERTENSION
     Dosage: UNK (DOSE REDUCED)
     Route: 048
  2. BISOPROLOL [Suspect]
     Active Substance: BISOPROLOL
     Indication: HYPERTENSION
  3. BISOPROLOL [Suspect]
     Active Substance: BISOPROLOL
     Indication: TRIFASCICULAR BLOCK

REACTIONS (3)
  - Trifascicular block [Recovered/Resolved]
  - Bradycardia [Recovered/Resolved]
  - Atrioventricular block complete [Unknown]
